FAERS Safety Report 7080682-9 (Version None)
Quarter: 2010Q4

REPORT INFORMATION
  Report Type: 
  Country: None (occurrence: None)
  Receive Date: 20101103
  Receipt Date: 20101028
  Transmission Date: 20110411
  Serious: Yes (Hospitalization)
  Sender: FDA-Public Use
  Company Number: US-GILEAD-2010-0032987

PATIENT
  Sex: Female
  Weight: 83.99 kg

DRUGS (13)
  1. LETAIRIS [Suspect]
     Indication: PULMONARY ARTERIAL HYPERTENSION
     Route: 048
     Dates: start: 20080216
  2. REVATIO [Concomitant]
  3. COUMADIN [Concomitant]
  4. ASPIRIN [Concomitant]
  5. DIOVAN HCT [Concomitant]
  6. VERAPAMIL [Concomitant]
  7. LIPITOR [Concomitant]
  8. PAROXETINE HCL [Concomitant]
  9. PHENOBARBITAL [Concomitant]
  10. LAMICTAL [Concomitant]
  11. VITAMIN D [Concomitant]
  12. FERROUS SULFATE [Concomitant]
  13. HYDROCHLOROQUINE [Concomitant]

REACTIONS (4)
  - CATHETERISATION CARDIAC [None]
  - CORONARY ARTERY DISEASE [None]
  - PULMONARY ARTERIAL HYPERTENSION [None]
  - RIGHT VENTRICULAR FAILURE [None]
